FAERS Safety Report 24856792 (Version 1)
Quarter: 2025Q1

REPORT INFORMATION
  Report Type: Spontaneous
  Country: US (occurrence: US)
  Receive Date: 20250117
  Receipt Date: 20250117
  Transmission Date: 20250409
  Serious: No
  Sender: BAYER HEALTHCARE PHARMACEUTICALS INC.
  Company Number: US-BAYER-2025A006410

PATIENT
  Age: 35 Year
  Sex: Female

DRUGS (2)
  1. ESTRADIOL [Suspect]
     Active Substance: ESTRADIOL
     Indication: Vulvovaginal dryness
     Route: 062
     Dates: start: 201808
  2. Lubricant estian [Concomitant]

REACTIONS (7)
  - Skin irritation [None]
  - Pruritus [None]
  - Rash [None]
  - Hot flush [None]
  - Vulvovaginal dryness [None]
  - Dyspareunia [None]
  - Mood altered [None]
